FAERS Safety Report 8529138 (Version 3)
Quarter: 2013Q4

REPORT INFORMATION
  Report Type: Spontaneous
  Country: US (occurrence: US)
  Receive Date: 20120425
  Receipt Date: 20131211
  Transmission Date: 20140711
  Serious: Yes (Other)
  Sender: FDA-Public Use
  Company Number: US-BAYER-2012-039122

PATIENT
  Age: 22 Year
  Sex: Female
  Weight: 52.15 kg

DRUGS (1)
  1. YASMIN [Suspect]
     Indication: CONTRACEPTION
     Dosage: UNK
     Dates: start: 200510, end: 20071027

REACTIONS (6)
  - Cholelithiasis [None]
  - Cholecystectomy [None]
  - Injury [None]
  - Pain [None]
  - Malaise [None]
  - Weight decreased [None]
